FAERS Safety Report 4613537-7 (Version None)
Quarter: 2005Q1

REPORT INFORMATION
  Report Type: 
  Country: None (occurrence: None)
  Receive Date: 20050321
  Receipt Date: 20050308
  Transmission Date: 20050727
  Serious: Yes (Congenital Anomaly)
  Sender: FDA-Public Use
  Company Number: GR-NOVOPROD-242800

PATIENT
  Sex: Female

DRUGS (2)
  1. NOVORAPID PENFILL 3.0 ML [Suspect]
     Indication: DIABETES MELLITUS INSULIN-DEPENDENT
     Dosage: 24 IU, QD
     Route: 015
     Dates: start: 20040728
  2. NOVORAPID PENFILL 3.0 ML [Suspect]
     Dosage: UNK, UNK

REACTIONS (2)
  - DRUG EXPOSURE DURING PREGNANCY [None]
  - MENINGOMYELOCELE [None]
